FAERS Safety Report 9473231 (Version 1)
Quarter: 2013Q3

REPORT INFORMATION
  Report Type: Spontaneous
  Country: US (occurrence: US)
  Receive Date: 20130823
  Receipt Date: 20130823
  Transmission Date: 20140515
  Serious: No
  Sender: FDA-Public Use
  Company Number: US-BRISTOL-MYERS SQUIBB COMPANY-18800078

PATIENT
  Age: 31 Year
  Sex: Male

DRUGS (1)
  1. SPRYCEL (CML) TABS 100 MG [Suspect]

REACTIONS (3)
  - Insomnia [Unknown]
  - Fatigue [Unknown]
  - Rash [Unknown]
